FAERS Safety Report 5930020-7 (Version None)
Quarter: 2008Q4

REPORT INFORMATION
  Report Type: 
  Country: None (occurrence: None)
  Receive Date: 20081021
  Receipt Date: 20081009
  Transmission Date: 20090506
  Serious: No
  Sender: FDA-Public Use
  Company Number: 20085361

PATIENT
  Sex: Male

DRUGS (1)
  1. LIORESAL [Suspect]
     Indication: MUSCLE SPASTICITY
     Dosage: 300-600 MCG, DAILY INTRATHECAL
     Route: 037

REACTIONS (4)
  - CRYING [None]
  - INTRACRANIAL HYPOTENSION [None]
  - MUSCLE SPASMS [None]
  - NO THERAPEUTIC RESPONSE [None]
